FAERS Safety Report 6033042-3 (Version None)
Quarter: 2009Q1

REPORT INFORMATION
  Report Type: 
  Country: None (occurrence: None)
  Receive Date: 20090105
  Receipt Date: 20080808
  Transmission Date: 20090719
  Serious: Yes (Other)
  Sender: FDA-Public Use
  Company Number: US-001704

PATIENT
  Sex: Male

DRUGS (1)
  1. PROHANCE [Suspect]
     Indication: NUCLEAR MAGNETIC RESONANCE IMAGING
     Dosage: QD QD INTRAVENOUS (NOT OTHERWISE SPECIFIED
     Route: 042
     Dates: start: 20080804, end: 20080804

REACTIONS (1)
  - HYPERSENSITIVITY [None]
